FAERS Safety Report 8314142-1 (Version None)
Quarter: 2012Q2

REPORT INFORMATION
  Report Type: 
  Country: None (occurrence: None)
  Receive Date: 20120424
  Receipt Date: 20120413
  Transmission Date: 20120825
  Serious: Yes (Hospitalization, Other)
  Sender: FDA-Public Use
  Company Number: 2011SP027909

PATIENT
  Age: 32 Year
  Sex: Female
  Weight: 112 kg

DRUGS (4)
  1. IMPLANON [Suspect]
  2. IMPLANON [Suspect]
  3. IMPLANON [Suspect]
     Indication: CONTRACEPTION
     Dosage: 1 DF; 65 MG
     Dates: start: 20090121
  4. IMPLANON [Suspect]
     Indication: CONTRACEPTION
     Dosage: 1 DF; 65 MG
     Dates: start: 20090122, end: 20090129

REACTIONS (7)
  - IMPLANT SITE PRURITUS [None]
  - ARTERIAL STENOSIS [None]
  - EMBOLISM ARTERIAL [None]
  - IMPLANT SITE ERYTHEMA [None]
  - HYPOAESTHESIA [None]
  - IMPLANT SITE HYPERSENSITIVITY [None]
  - PERIPHERAL ISCHAEMIA [None]
